FAERS Safety Report 4611052-8 (Version None)
Quarter: 2005Q2

REPORT INFORMATION
  Report Type: 
  Country: None (occurrence: None)
  Receive Date: 20050314
  Receipt Date: 20040901
  Transmission Date: 20051028
  Serious: Yes (Hospitalization)
  Sender: FDA-Public Use
  Company Number: US_0409105166

PATIENT
  Age: 71 Year
  Sex: Male

DRUGS (14)
  1. GEMZAR [Suspect]
     Indication: PANCREATIC CARCINOMA METASTATIC
     Dosage: 2000 MG/1 WEEK
     Dates: start: 20040707
  2. NPH INSULIN [Concomitant]
  3. ATENOLOL [Concomitant]
  4. ALBUMIN NOS W/ DARBEPOETIN ALFA [Concomitant]
  5. FENTANYL [Concomitant]
  6. LASIX [Concomitant]
  7. GLYBURIDE [Concomitant]
  8. METFORMIN [Concomitant]
  9. OXYCODONE HCL [Concomitant]
  10. SENNOSIDE A+B [Concomitant]
  11. LISINOPRIL [Concomitant]
  12. MORPHINE [Concomitant]
  13. SIMVASTATIN [Concomitant]
  14. WARFARIN SODIUM [Concomitant]

REACTIONS (1)
  - CELLULITIS [None]
